FAERS Safety Report 24843283 (Version 1)
Quarter: 2025Q1

REPORT INFORMATION
  Report Type: Report from Study
  Country: US (occurrence: US)
  Receive Date: 20250115
  Receipt Date: 20250115
  Transmission Date: 20250409
  Serious: No
  Sender: HRA PHARMA
  Company Number: US-ORG100014127-2023001058

PATIENT
  Age: 66 Year
  Sex: Male

DRUGS (16)
  1. LYSODREN [Suspect]
     Active Substance: MITOTANE
     Indication: Adrenal gland cancer
     Dosage: 2 TABLETS BY MOUTH TWICE DAILY FOR 2 WEEKS
     Route: 048
     Dates: start: 20231013
  2. LYSODREN [Suspect]
     Active Substance: MITOTANE
     Indication: Adrenal gland cancer
     Dosage: 4 TABLETS TWICE DAILY FOR 2 WEEKS
     Route: 048
  3. LYSODREN [Suspect]
     Active Substance: MITOTANE
     Indication: Adrenal gland cancer
     Dosage: 5 TABLETS THREE TIMES DAILY
     Route: 048
  4. atorvastatin tablet 40mg [Concomitant]
     Indication: Product used for unknown indication
  5. Colcrys tablet 0.6mg [Concomitant]
     Indication: Product used for unknown indication
  6. diltiazem capsule 120mg [Concomitant]
     Indication: Product used for unknown indication
  7. DOXAZOSIN [Concomitant]
     Active Substance: DOXAZOSIN MESYLATE
     Indication: Product used for unknown indication
  8. Furosemide tablet 80mg [Concomitant]
     Indication: Product used for unknown indication
  9. LISINOPRIL [Concomitant]
     Active Substance: LISINOPRIL
     Indication: Product used for unknown indication
  10. prochlorperazine tablet 10 mg [Concomitant]
     Indication: Product used for unknown indication
  11. SILDENAFIL [Concomitant]
     Active Substance: SILDENAFIL
     Indication: Product used for unknown indication
  12. xarelto tablet 15mg [Concomitant]
     Indication: Product used for unknown indication
  13. ELIQUIS [Concomitant]
     Active Substance: APIXABAN
     Indication: Atrial fibrillation
  14. ETOPOSIDE [Concomitant]
     Active Substance: ETOPOSIDE
     Indication: Adrenocortical carcinoma
     Dates: start: 20231018
  15. DOXORUBICIN [Concomitant]
     Active Substance: DOXORUBICIN
     Indication: Adrenocortical carcinoma
     Dates: start: 20231018
  16. CISPLATIN [Concomitant]
     Active Substance: CISPLATIN
     Indication: Adrenocortical carcinoma
     Dates: start: 20231018

REACTIONS (4)
  - Oropharyngeal pain [Not Recovered/Not Resolved]
  - Dyspnoea [Unknown]
  - Fatigue [Not Recovered/Not Resolved]
  - Asthenia [Unknown]

NARRATIVE: CASE EVENT DATE: 20231013
